FAERS Safety Report 8838542 (Version 2)
Quarter: 2012Q4

REPORT INFORMATION
  Report Type: 
  Country: US (occurrence: US)
  Receive Date: 20121012
  Receipt Date: 20121119
  Transmission Date: 20130627
  Serious: Yes (Hospitalization, Other)
  Sender: FDA-Public Use
  Company Number: US-BAYER-2012-106492

PATIENT
  Age: 79 Year
  Sex: Male
  Weight: 82 kg

DRUGS (13)
  1. LEVITRA [Suspect]
     Dosage: 10-20 mg
     Route: 048
     Dates: start: 2009, end: 20120930
  2. LEVITRA [Suspect]
     Dosage: 1 DF, UNK
     Dates: start: 20120730
  3. LEVITRA [Suspect]
     Dosage: 0.5 DF, UNK
     Dates: start: 20120826
  4. COUMADIN [Concomitant]
  5. ACETYLSALICYLIC ACID({=100 MG) [Concomitant]
  6. LEVOTHYROXIN [Concomitant]
     Dosage: Daily dose 50 ?g
  7. DIGOXIN [Concomitant]
     Dosage: 0.25 mg, UNK
  8. RAMIPRIL [Concomitant]
     Dosage: 2.5 mg, UNK
  9. SIMVASTATIN [Concomitant]
     Dosage: 80 mg, UNK
  10. ATENOLOL [Concomitant]
     Dosage: 50 mg, UNK
  11. WARFARIN [Concomitant]
     Dosage: 5 mg, UNK
  12. ASPIRIN [Concomitant]
     Dosage: 81 mg, UNK
  13. FISH OIL [Concomitant]
     Dosage: UNK

REACTIONS (5)
  - Diarrhoea [Recovered/Resolved]
  - Diarrhoea [None]
  - Occult blood positive [None]
  - Gastrointestinal inflammation [None]
  - Diarrhoea [None]
